FAERS Safety Report 20618004 (Version 1)
Quarter: 2022Q1

REPORT INFORMATION
  Report Type: Spontaneous
  Country: FR (occurrence: FR)
  Receive Date: 20220321
  Receipt Date: 20220321
  Transmission Date: 20220423
  Serious: Yes (Congenital Anomaly, Other)
  Sender: FDA-Public Use
  Company Number: FR-ABBVIE-22K-056-4321404-00

PATIENT
  Weight: 2.18 kg

DRUGS (2)
  1. VALPROATE SODIUM [Suspect]
     Active Substance: VALPROATE SODIUM
     Indication: Maternal exposure timing unspecified
     Route: 064
  2. CAFFEINE\PHENOBARBITAL [Suspect]
     Active Substance: CAFFEINE\PHENOBARBITAL
     Indication: Maternal exposure timing unspecified
     Route: 064

REACTIONS (11)
  - Congenital foot malformation [Unknown]
  - Cognitive disorder [Unknown]
  - Mental disorder [Unknown]
  - Ear, nose and throat disorder [Unknown]
  - Cardiac murmur [Unknown]
  - Otitis media [Unknown]
  - Nasopharyngitis [Unknown]
  - Laryngitis [Unknown]
  - Pharyngitis [Unknown]
  - Disturbance in attention [Unknown]
  - Foetal exposure during pregnancy [Unknown]
